FAERS Safety Report 8959398 (Version 2)
Quarter: 2013Q1

REPORT INFORMATION
  Report Type: Spontaneous
  Country: US (occurrence: US)
  Receive Date: 20121212
  Receipt Date: 20130128
  Transmission Date: 20140127
  Serious: No
  Sender: FDA-Public Use
  Company Number: US-BIOGENIDEC-2012BI059000

PATIENT
  Age: 43 None
  Sex: Female

DRUGS (2)
  1. TYSABRI [Suspect]
     Indication: MULTIPLE SCLEROSIS
     Route: 042
     Dates: start: 20120810
  2. AVONEX [Concomitant]
     Indication: MULTIPLE SCLEROSIS
     Route: 030

REACTIONS (17)
  - Ear pain [Recovered/Resolved]
  - Sensitivity of teeth [Recovered/Resolved]
  - Tooth repair [Unknown]
  - Dehydration [Not Recovered/Not Resolved]
  - Sleep disorder [Not Recovered/Not Resolved]
  - General symptom [Not Recovered/Not Resolved]
  - Initial insomnia [Recovered/Resolved]
  - Feeling abnormal [Recovered/Resolved]
  - Abdominal pain [Recovered/Resolved]
  - Depressed mood [Recovered/Resolved]
  - Mental impairment [Not Recovered/Not Resolved]
  - Amnesia [Recovered/Resolved]
  - Endodontic procedure [Recovered/Resolved]
  - Musculoskeletal stiffness [Recovered/Resolved]
  - Memory impairment [Not Recovered/Not Resolved]
  - Tooth infection [Recovered/Resolved]
  - Headache [Not Recovered/Not Resolved]
